FAERS Safety Report 18706804 (Version 4)
Quarter: 2021Q2

REPORT INFORMATION
  Report Type: Report from Study
  Country: CO (occurrence: CO)
  Receive Date: 20210106
  Receipt Date: 20210525
  Transmission Date: 20210717
  Serious: Yes (Hospitalization, Other)
  Sender: FDA-Public Use
  Company Number: CO-TAKEDA-CO201503739

PATIENT
  Age: 45 Year
  Sex: Male
  Weight: 82 kg

DRUGS (2)
  1. VELAGLUCERASE ALFA [Suspect]
     Active Substance: VELAGLUCERASE ALFA
     Indication: GAUCHER^S DISEASE
     Dosage: 5200 INTERNATIONAL UNIT, Q2WEEKS
     Route: 042
     Dates: start: 20120605
  2. VELAGLUCERASE ALFA [Suspect]
     Active Substance: VELAGLUCERASE ALFA
     Dosage: 5200 INTERNATIONAL UNIT, 2/MONTH
     Route: 042
     Dates: start: 20120605

REACTIONS (9)
  - Syncope [Recovering/Resolving]
  - Influenza like illness [Recovering/Resolving]
  - Pain [Not Recovered/Not Resolved]
  - Pyrexia [Recovered/Resolved]
  - Product dose omission issue [Unknown]
  - Biopsy bone [Recovered/Resolved]
  - Epistaxis [Not Recovered/Not Resolved]
  - Incorrect dose administered [Unknown]
  - Obstruction [Recovering/Resolving]

NARRATIVE: CASE EVENT DATE: 20150420
